FAERS Safety Report 8991238 (Version 1)
Quarter: 2012Q4

REPORT INFORMATION
  Report Type: Report from Study
  Country: CA (occurrence: CA)
  Receive Date: 20121231
  Receipt Date: 20121231
  Transmission Date: 20130627
  Serious: Yes (Other)
  Sender: FDA-Public Use
  Company Number: CA-ROCHE-1166772

PATIENT
  Age: 62 Year
  Sex: Male
  Weight: 90 kg

DRUGS (3)
  1. OMALIZUMAB [Suspect]
     Indication: ASTHMA
     Route: 065
     Dates: start: 20070508
  2. OMALIZUMAB [Suspect]
     Route: 058
     Dates: start: 20090927
  3. OMALIZUMAB [Suspect]
     Route: 058
     Dates: start: 20091204

REACTIONS (15)
  - Drug hypersensitivity [Not Recovered/Not Resolved]
  - Dyspnoea [Not Recovered/Not Resolved]
  - Blood immunoglobulin E increased [Unknown]
  - Hypertension [Unknown]
  - Nasopharyngitis [Unknown]
  - Epistaxis [Recovered/Resolved]
  - Gastrooesophageal reflux disease [Unknown]
  - Tooth disorder [Unknown]
  - Influenza [Unknown]
  - Humidity intolerance [Unknown]
  - Dysphonia [Not Recovered/Not Resolved]
  - Productive cough [Not Recovered/Not Resolved]
  - Multiple allergies [Unknown]
  - Asthma [Unknown]
  - Seasonal allergy [Unknown]
